FAERS Safety Report 10435285 (Version 1)
Quarter: 2014Q3

REPORT INFORMATION
  Report Type: Spontaneous
  Country: SE (occurrence: SE)
  Receive Date: 20140908
  Receipt Date: 20140908
  Transmission Date: 20150326
  Serious: Yes (Hospitalization)
  Sender: FDA-Public Use
  Company Number: SE-AMGEN-SWESP2014067290

PATIENT
  Age: 61 Year
  Sex: Female

DRUGS (4)
  1. CALCICHEW D3 [Concomitant]
     Active Substance: CALCIUM\CHOLECALCIFEROL
  2. PROLIA [Suspect]
     Active Substance: DENOSUMAB
     Indication: OSTEOPOROSIS
     Dosage: 60 MG, Q6MO
     Route: 065
     Dates: start: 20111115, end: 20131115
  3. TRADOLAN [Concomitant]
     Active Substance: TRAMADOL
  4. MIANSERIN [Concomitant]
     Active Substance: MIANSERIN

REACTIONS (1)
  - Iron deficiency anaemia [Recovered/Resolved]
